FAERS Safety Report 9099642 (Version 2)
Quarter: 2013Q1

REPORT INFORMATION
  Report Type: Spontaneous
  Country: FR (occurrence: FR)
  Receive Date: 20130121
  Receipt Date: 20130121
  Transmission Date: 20140127
  Serious: Yes (Hospitalization)
  Sender: FDA-Public Use
  Company Number: PHHY2012FR034861

PATIENT
  Age: 40 Year
  Sex: Female
  Weight: 58 kg

DRUGS (2)
  1. RASILEZ [Suspect]
     Indication: HYPERTENSION
     Dosage: 1 DF DAILY
     Dates: start: 20110201, end: 201205
  2. MELODIA [Concomitant]
     Indication: CONTRACEPTION
     Dosage: UNK
     Route: 048

REACTIONS (2)
  - Cough [Recovered/Resolved]
  - Eosinophilia [Recovered/Resolved]
